FAERS Safety Report 10631076 (Version 21)
Quarter: 2025Q4

REPORT INFORMATION
  Report Type: Report from Study
  Country: US (occurrence: US)
  Receive Date: 20141205
  Receipt Date: 20251223
  Transmission Date: 20260118
  Serious: Yes (Hospitalization, Other)
  Sender: PFIZER
  Company Number: US-PFIZER INC-2014330922

PATIENT
  Age: 60 Year
  Sex: Female
  Weight: 35.83 kg

DRUGS (6)
  1. PREMARIN [Suspect]
     Active Substance: ESTROGENS, CONJUGATED
     Indication: Hormone replacement therapy
     Dosage: 1.25 MG, 1X/DAY
     Dates: start: 198009, end: 200712
  2. PREMARIN [Suspect]
     Active Substance: ESTROGENS, CONJUGATED
     Indication: Malnutrition
     Dosage: 0.45 MG, 1X/DAY
     Route: 048
     Dates: start: 200801
  3. IRON [Concomitant]
     Active Substance: IRON
     Indication: Anaemia
     Dosage: UNK, 1X/DAY
  4. IRON [Concomitant]
     Active Substance: IRON
     Indication: Blood iron abnormal
  5. CENTRUM ADULTS [Concomitant]
     Dosage: UNK
  6. CALCIUM [Concomitant]
     Active Substance: CALCIUM
     Dosage: UNK

REACTIONS (10)
  - Heart rate abnormal [Recovered/Resolved]
  - Drug dependence [Unknown]
  - Hand fracture [Unknown]
  - Drug ineffective [Recovered/Resolved]
  - Blood pressure abnormal [Recovered/Resolved]
  - Fatigue [Recovered/Resolved]
  - Insomnia [Not Recovered/Not Resolved]
  - Withdrawal syndrome [Unknown]
  - Illness [Unknown]
  - Weight decreased [Unknown]

NARRATIVE: CASE EVENT DATE: 20010101
